FAERS Safety Report 9423221 (Version 2)
Quarter: 2013Q3

REPORT INFORMATION
  Report Type: Spontaneous
  Country: US (occurrence: US)
  Receive Date: 20130726
  Receipt Date: 20130816
  Transmission Date: 20140515
  Serious: Yes (Other)
  Sender: FDA-Public Use
  Company Number: US-BAYER-2013-088856

PATIENT
  Age: 24 Year
  Sex: Female
  Weight: 91.16 kg

DRUGS (1)
  1. MIRENA [Suspect]
     Indication: CONTRACEPTION
     Dosage: 20 MCG/24HR, CONT
     Route: 015
     Dates: start: 20130605, end: 20130607

REACTIONS (5)
  - Evacuation of retained products of conception [None]
  - Procedural pain [Recovered/Resolved]
  - Device dislocation [Recovered/Resolved]
  - Procedural haemorrhage [None]
  - Post procedural haemorrhage [None]
